FAERS Safety Report 19898158 (Version 1)
Quarter: 2021Q3

REPORT INFORMATION
  Report Type: Spontaneous
  Country: CA (occurrence: CA)
  Receive Date: 20210930
  Receipt Date: 20210930
  Transmission Date: 20211014
  Serious: Yes (Other)
  Sender: FDA-Public Use
  Company Number: CA-BAUSCH-BL-2021-032489

PATIENT
  Age: 79 Year
  Sex: Female

DRUGS (5)
  1. EFUDEX [Suspect]
     Active Substance: FLUOROURACIL
     Route: 065
  2. EFUDEX [Suspect]
     Active Substance: FLUOROURACIL
     Indication: PRECANCEROUS SKIN LESION
     Route: 065
  3. CALCIPOTRIOL [Suspect]
     Active Substance: CALCIPOTRIENE
     Indication: PRECANCEROUS SKIN LESION
     Route: 065
  4. ROSUVASTATIN. [Concomitant]
     Active Substance: ROSUVASTATIN
     Indication: BLOOD CHOLESTEROL INCREASED
  5. CALCIPOTRIOL [Suspect]
     Active Substance: CALCIPOTRIENE
     Route: 065

REACTIONS (7)
  - Skin reaction [Not Recovered/Not Resolved]
  - Erythema [Not Recovered/Not Resolved]
  - Skin disorder [Not Recovered/Not Resolved]
  - Burning sensation [Not Recovered/Not Resolved]
  - Off label use [Not Recovered/Not Resolved]
  - Pain of skin [Not Recovered/Not Resolved]
  - Precancerous skin lesion [Not Recovered/Not Resolved]
